FAERS Safety Report 5816122-4 (Version None)
Quarter: 2008Q3

REPORT INFORMATION
  Report Type: 
  Country: None (occurrence: None)
  Receive Date: 20080717
  Receipt Date: 20080717
  Transmission Date: 20090109
  Serious: No
  Sender: FDA-Public Use
  Company Number: None

PATIENT
  Sex: Female
  Weight: 103.8737 kg

DRUGS (1)
  1. RHOGAM [Suspect]
     Indication: RHESUS ANTIBODIES NEGATIVE
     Dosage: 1500 IU ONE TIME IM
     Route: 030
     Dates: start: 20080610

REACTIONS (1)
  - MEDICATION ERROR [None]
